FAERS Safety Report 16026066 (Version 1)
Quarter: 2019Q1

REPORT INFORMATION
  Report Type: Spontaneous
  Country: US (occurrence: US)
  Receive Date: 20190302
  Receipt Date: 20190302
  Transmission Date: 20190418
  Serious: Yes (Other)
  Sender: FDA-Public Use
  Company Number: US-TEVA-2019-US-1019343

PATIENT
  Sex: Male

DRUGS (1)
  1. AMLODIPINE BESYLATE / VALSARTAN [Suspect]
     Active Substance: AMLODIPINE BESYLATE\VALSARTAN
     Dosage: STRENGTH: 5 MG / 320 MG
     Route: 065
     Dates: start: 201711

REACTIONS (9)
  - Recalled product administered [Unknown]
  - Product use complaint [None]
  - Abnormal loss of weight [Not Recovered/Not Resolved]
  - Dysphonia [Not Recovered/Not Resolved]
  - Dysphagia [Recovering/Resolving]
  - Cough [Not Recovered/Not Resolved]
  - Dyspepsia [Not Recovered/Not Resolved]
  - Throat tightness [Recovered/Resolved]
  - Chest pain [Not Recovered/Not Resolved]
